FAERS Safety Report 17905668 (Version 1)
Quarter: 2020Q2

REPORT INFORMATION
  Report Type: Spontaneous
  Country: US (occurrence: US)
  Receive Date: 20200616
  Receipt Date: 20200616
  Transmission Date: 20200714
  Serious: Yes (Hospitalization)
  Sender: FDA-Public Use
  Company Number: US-ROCHE-2370368

PATIENT
  Age: 70 Year
  Sex: Female

DRUGS (1)
  1. ACTEMRA [Suspect]
     Active Substance: TOCILIZUMAB
     Indication: RHEUMATOID ARTHRITIS
     Dosage: 162 MG/0.9 ML SYR
     Route: 058
     Dates: start: 20180129

REACTIONS (4)
  - Abscess [Unknown]
  - Gastrointestinal perforation [Unknown]
  - Hepatic enzyme increased [Unknown]
  - Constipation [Unknown]

NARRATIVE: CASE EVENT DATE: 20190618
